FAERS Safety Report 26039016 (Version 2)
Quarter: 2025Q4

REPORT INFORMATION
  Report Type: Spontaneous
  Country: EU (occurrence: EU)
  Receive Date: 20251113
  Receipt Date: 20251125
  Transmission Date: 20260118
  Serious: Yes (Hospitalization)
  Sender: AUROBINDO
  Company Number: EU-JNJFOC-20251034122

PATIENT
  Age: 9 Decade
  Sex: Male

DRUGS (3)
  1. LENALIDOMIDE [Suspect]
     Active Substance: LENALIDOMIDE
     Indication: Plasma cell myeloma
     Dosage: 5 MILLIGRAM (LAST ADMINISTERED ON 15-OCT-2025, 30 DAYS AFTER THERAPY: 14-NOV-2025)
  2. DARATUMUMAB [Suspect]
     Active Substance: DARATUMUMAB
     Indication: Plasma cell myeloma
     Dosage: 1800 MILLIGRAM (LAST ADMINISTERED ON 25-SEP-2025, 30 DAYS AFTER THERAPY: 25-OCT-2025)
  3. DEXAMETHASONE [Suspect]
     Active Substance: DEXAMETHASONE
     Indication: Plasma cell myeloma
     Dosage: 20 MILLIGRAM (LAST ADMINISTERED ON 25-SEP-2025, 30 DAYS AFTER THERAPY: 25-OCT-2025)

REACTIONS (3)
  - Hyponatraemia [Recovered/Resolved]
  - General physical health deterioration [Unknown]
  - Diarrhoea [Unknown]

NARRATIVE: CASE EVENT DATE: 20251021
